FAERS Safety Report 6945164-0 (Version None)
Quarter: 2010Q3

REPORT INFORMATION
  Report Type: 
  Country: None (occurrence: None)
  Receive Date: 20100827
  Receipt Date: 20100818
  Transmission Date: 20110219
  Serious: Yes (Other)
  Sender: FDA-Public Use
  Company Number: US-AMGEN-QUU429704

PATIENT
  Sex: Male

DRUGS (2)
  1. NPLATE [Suspect]
     Indication: IDIOPATHIC THROMBOCYTOPENIC PURPURA
     Dates: start: 20091113, end: 20100420
  2. CORTICOSTEROIDS [Concomitant]
     Dates: start: 20080201

REACTIONS (2)
  - HAEMATOLOGICAL MALIGNANCY [None]
  - THERAPEUTIC RESPONSE DECREASED [None]
